FAERS Safety Report 14292656 (Version 1)
Quarter: 2017Q4

REPORT INFORMATION
  Report Type: Spontaneous
  Country: US (occurrence: US)
  Receive Date: 20171215
  Receipt Date: 20171215
  Transmission Date: 20180321
  Serious: No
  Sender: FDA-Public Use
  Company Number: US-BRAEBURN PHARMACEUTICALS, INC.-2017BBN00062

PATIENT
  Age: 41 Year
  Sex: Male
  Weight: 75.28 kg

DRUGS (1)
  1. PROBUPHINE [Suspect]
     Active Substance: BUPRENORPHINE HYDROCHLORIDE
     Dosage: 4 DOSAGE UNITS, ONCE UNDER THE LEFT ARM
     Dates: start: 201709

REACTIONS (7)
  - Malaise [Recovered/Resolved]
  - Drug ineffective for unapproved indication [Recovered/Resolved]
  - Lacrimation increased [Recovered/Resolved]
  - Cold sweat [Recovered/Resolved]
  - Yawning [Recovered/Resolved]
  - Withdrawal syndrome [Recovered/Resolved]
  - Migration of implanted drug [Not Recovered/Not Resolved]

NARRATIVE: CASE EVENT DATE: 201709
